FAERS Safety Report 4286142-2 (Version None)
Quarter: 2004Q1

REPORT INFORMATION
  Report Type: 
  Country: None (occurrence: None)
  Receive Date: 20040203
  Receipt Date: 20040121
  Transmission Date: 20041129
  Serious: Yes (Hospitalization)
  Sender: FDA-Public Use
  Company Number: 2004003804

PATIENT
  Age: 94 Year
  Sex: Female

DRUGS (6)
  1. ATARAX [Suspect]
     Indication: ANXIETY
     Dosage: 25 MG , ORAL
     Route: 048
  2. LEVOTHYROXINE SODIUM [Suspect]
     Indication: HYPOTHYROIDISM
     Dosage: 50 MCG, ORAL
     Route: 048
  3. DIOSMIN (DIOSMIN) [Suspect]
     Indication: CARDIOVASCULAR DISORDER
     Dosage: ORAL
     Route: 048
     Dates: end: 20031022
  4. CLOPIDOGREL BISULFATE [Suspect]
     Indication: ILL-DEFINED DISORDER
     Dosage: ORAL
     Route: 048
     Dates: end: 20031022
  5. APOREX (PARACETAMOL, DEXTROPROPOXYPHENE HYDROCHLORIDE) [Suspect]
     Indication: ARTHROPATHY
     Dosage: ORAL
     Route: 048
     Dates: end: 20031022
  6. GAVISCON [Suspect]
     Indication: OESOPHAGITIS
     Dosage: ORAL
     Route: 048

REACTIONS (5)
  - ECZEMA [None]
  - PRURITUS [None]
  - PURPURA [None]
  - RASH ERYTHEMATOUS [None]
  - SKIN LESION [None]
